FAERS Safety Report 4269354-3 (Version None)
Quarter: 2004Q1

REPORT INFORMATION
  Report Type: 
  Country: None (occurrence: None)
  Receive Date: 20040108
  Receipt Date: 20031223
  Transmission Date: 20041129
  Serious: Yes (Hospitalization)
  Sender: FDA-Public Use
  Company Number: DSA_23776_2003

PATIENT
  Age: 82 Year
  Sex: Female

DRUGS (7)
  1. TEMESTA [Suspect]
     Indication: ANXIETY
     Dosage: 2.5 MG BID PO
     Route: 048
     Dates: start: 20030901, end: 20031203
  2. TEMESTA [Suspect]
     Indication: ANXIETY
     Dosage: 1.25 MG QD PO
     Route: 048
     Dates: start: 20031204
  3. ANAFRANIL [Suspect]
     Indication: DEPRESSION
     Dosage: 25 MG BID PO
     Route: 048
     Dates: start: 20020901, end: 20021203
  4. ANAFRANIL [Suspect]
     Indication: DEPRESSION
     Dosage: 10 MG QD PO
     Route: 048
     Dates: end: 20020901
  5. GAVISCON [Suspect]
     Dosage: 3 QD PO
     Route: 048
     Dates: start: 50020401, end: 20021203
  6. IMOVANE [Suspect]
     Indication: ANXIETY
     Dosage: 7.5 MG BID PO
     Route: 048
     Dates: start: 20020901, end: 20021203
  7. PROPYLTHIOURACIL [Suspect]
     Indication: HYPERTHYROIDISM
     Dosage: 50 MG QD PO
     Route: 048
     Dates: start: 20020401, end: 20021203

REACTIONS (4)
  - BLOOD SODIUM DECREASED [None]
  - CONFUSIONAL STATE [None]
  - DELIRIUM [None]
  - HALLUCINATION [None]
